FAERS Safety Report 19292764 (Version 2)
Quarter: 2021Q2

REPORT INFORMATION
  Report Type: Spontaneous
  Country: US (occurrence: US)
  Receive Date: 20210524
  Receipt Date: 20210615
  Transmission Date: 20210717
  Serious: No
  Sender: FDA-Public Use
  Company Number: US-GLAXOSMITHKLINE-USCH2021030721

PATIENT
  Age: 81 Year
  Sex: Male

DRUGS (1)
  1. VOLTAREN ARTHRITIS PAIN [Suspect]
     Active Substance: DICLOFENAC SODIUM
     Indication: PAIN
     Dates: start: 20210519, end: 20210519

REACTIONS (3)
  - Off label use [Unknown]
  - Therapeutic product effect delayed [Unknown]
  - Vasodilatation [Unknown]

NARRATIVE: CASE EVENT DATE: 20210519
